FAERS Safety Report 6139519-4 (Version None)
Quarter: 2009Q2

REPORT INFORMATION
  Report Type: 
  Country: None (occurrence: None)
  Receive Date: 20090401
  Receipt Date: 20080617
  Transmission Date: 20091009
  Serious: Yes (Other)
  Sender: FDA-Public Use
  Company Number: PHHO2006BR21799

PATIENT
  Sex: Female
  Weight: 85 kg

DRUGS (9)
  1. DIOVAN HCT [Suspect]
     Indication: HYPERTENSION
     Dosage: 80 MG/12.5 MG
     Route: 048
     Dates: start: 20020101
  2. MIFLASONE [Suspect]
     Indication: ASTHMA
  3. AEROLIN [Concomitant]
     Indication: ASTHMA
  4. ATROVENT [Concomitant]
     Indication: ASTHMA
  5. BEROTEC [Concomitant]
     Indication: ASTHMA
  6. GLUCOVANCE [Concomitant]
     Indication: DIABETES MELLITUS
     Dosage: 1 DF, BID
     Route: 048
     Dates: start: 20060101
  7. FRONTAL [Concomitant]
     Indication: PANIC DISORDER
     Dosage: 2 DF (1 MG)/DAY
     Route: 048
  8. METFORMIN [Concomitant]
     Indication: DIABETES MELLITUS
     Dosage: 3 DF (850 MG) DAILY
     Route: 048
     Dates: start: 20030101
  9. GLIBENCLAMIDE [Concomitant]
     Indication: DIABETES MELLITUS
     Dosage: 2 DF (5 MG) DAILY
     Route: 048
     Dates: start: 20060101

REACTIONS (7)
  - ABDOMINAL PAIN UPPER [None]
  - BLOOD PRESSURE INCREASED [None]
  - DRUG ADMINISTRATION ERROR [None]
  - DRUG INEFFECTIVE [None]
  - HEPATOMEGALY [None]
  - NERVOUSNESS [None]
  - OEDEMA PERIPHERAL [None]
